FAERS Safety Report 16181499 (Version 2)
Quarter: 2019Q2

REPORT INFORMATION
  Report Type: Report from Study
  Country: US (occurrence: US)
  Receive Date: 20190410
  Receipt Date: 20190510
  Transmission Date: 20190711
  Serious: Yes (Hospitalization)
  Sender: FDA-Public Use
  Company Number: US-INCYTE CORPORATION-2019IN003361

PATIENT

DRUGS (3)
  1. JAKAFI [Suspect]
     Active Substance: RUXOLITINIB
     Dosage: UNK
     Route: 065
     Dates: end: 20190329
  2. SCREENING [Suspect]
     Active Substance: UNSPECIFIED INGREDIENT
     Indication: MYELOFIBROSIS
     Dosage: UNK
     Route: 065
  3. ASA [Concomitant]
     Active Substance: ASPIRIN
     Indication: ESSENTIAL THROMBOCYTHAEMIA
     Dosage: 325 MG, QD
     Route: 065

REACTIONS (2)
  - Platelet count decreased [Unknown]
  - Bacillus infection [Unknown]

NARRATIVE: CASE EVENT DATE: 20190331
